FAERS Safety Report 4534763-1 (Version None)
Quarter: 2004Q4

REPORT INFORMATION
  Report Type: 
  Country: None (occurrence: None)
  Receive Date: 20041222
  Receipt Date: 20040210
  Transmission Date: 20050328
  Serious: No
  Sender: FDA-Public Use
  Company Number: US-BRISTOL-MYERS SQUIBB COMPANY-12501078

PATIENT
  Age: 76 Year
  Sex: Male
  Weight: 78 kg

DRUGS (8)
  1. PRAVACHOL [Suspect]
     Indication: BLOOD CHOLESTEROL INCREASED
     Route: 048
     Dates: end: 20040209
  2. ACCUPRIL [Concomitant]
  3. CORGARD [Concomitant]
     Dosage: DOSAGE FORM = TABLET
  4. VITAMIN E [Concomitant]
     Dosage: DOSAGE FORM = TABLET
  5. ECOTRIN [Concomitant]
  6. TOPROL-XL [Concomitant]
  7. HYDROCHLOROTHIAZIDE [Concomitant]
  8. NORVASC [Concomitant]

REACTIONS (1)
  - DRUG EFFECT DECREASED [None]
